FAERS Safety Report 5842245-X (Version None)
Quarter: 2008Q3

REPORT INFORMATION
  Report Type: 
  Country: None (occurrence: None)
  Receive Date: 20080812
  Receipt Date: 20080806
  Transmission Date: 20090109
  Serious: Yes (Life-Threatening, Other)
  Sender: FDA-Public Use
  Company Number: US-BOEHRINGER INGELHEIM GMBH, GERMANY-2008-BP-11073BP

PATIENT
  Age: 1 Year
  Sex: Female
  Weight: 8 kg

DRUGS (6)
  1. CATAPRES-TTS-1 [Suspect]
     Indication: WITHDRAWAL SYNDROME
     Route: 062
     Dates: start: 20080608, end: 20080616
  2. TPN/LIPIDS [Concomitant]
     Dates: start: 20080610, end: 20080620
  3. ZOSYN [Concomitant]
     Route: 042
     Dates: start: 20080614, end: 20080618
  4. ZANTAC [Concomitant]
     Route: 042
     Dates: start: 20080614, end: 20080621
  5. ZOFRAN [Concomitant]
     Route: 042
     Dates: start: 20080608, end: 20080619
  6. MORPHINE NCA [Concomitant]
     Dates: start: 20080608, end: 20080615

REACTIONS (8)
  - ABDOMINAL DISTENSION [None]
  - ABDOMINAL RIGIDITY [None]
  - DEPRESSED LEVEL OF CONSCIOUSNESS [None]
  - MEDICATION ERROR [None]
  - RESPIRATORY FAILURE [None]
  - SEPSIS [None]
  - SKIN DISCOLOURATION [None]
  - SOMNOLENCE [None]
